FAERS Safety Report 23277492 (Version 1)
Quarter: 2023Q4

REPORT INFORMATION
  Report Type: Spontaneous
  Country: US (occurrence: None)
  Receive Date: 20231207
  Receipt Date: 20231207
  Transmission Date: 20240110
  Serious: Yes (Other)
  Sender: FDA-Public Use
  Company Number: None

PATIENT
  Age: 44 Year
  Sex: Male
  Weight: 120.15 kg

DRUGS (8)
  1. GABAPENTIN [Suspect]
     Active Substance: GABAPENTIN
     Indication: Anxiety
     Dosage: FREQUENCY : 3 TIMES A DAY;?
     Route: 048
     Dates: start: 20231203, end: 20231207
  2. MESTINON [Concomitant]
     Active Substance: PYRIDOSTIGMINE BROMIDE
  3. INSULIN NOS [Concomitant]
     Active Substance: INSULIN NOS
  4. LOSARTAN [Concomitant]
     Active Substance: LOSARTAN
  5. prazoin [Concomitant]
  6. LEVOTHYROXINE [Concomitant]
     Active Substance: LEVOTHYROXINE
  7. METFORMIN [Concomitant]
     Active Substance: METFORMIN HYDROCHLORIDE
  8. LEXAPRO [Concomitant]
     Active Substance: ESCITALOPRAM OXALATE

REACTIONS (6)
  - Irritability [None]
  - Agitation [None]
  - Frustration tolerance decreased [None]
  - Movement disorder [None]
  - Muscle spasms [None]
  - Drug ineffective [None]

NARRATIVE: CASE EVENT DATE: 20231205
